FAERS Safety Report 14879061 (Version 2)
Quarter: 2018Q2

REPORT INFORMATION
  Report Type: Spontaneous
  Country: US (occurrence: US)
  Receive Date: 20180511
  Receipt Date: 20180517
  Transmission Date: 20180711
  Serious: No
  Sender: FDA-Public Use
  Company Number: US-SA-2017SA213551

PATIENT
  Sex: Female

DRUGS (9)
  1. LANTUS SOLOSTAR [Suspect]
     Active Substance: INSULIN GLARGINE
     Route: 051
     Dates: end: 2015
  2. SOLOSTAR [Suspect]
     Active Substance: DEVICE
  3. TOUJEO [Suspect]
     Active Substance: INSULIN GLARGINE
     Dosage: DOSE:12 UNIT(S)
     Route: 065
  4. SOLOSTAR [Suspect]
     Active Substance: DEVICE
  5. SOLOSTAR [Suspect]
     Active Substance: DEVICE
     Dates: end: 2015
  6. NOVOLOG [Concomitant]
     Active Substance: INSULIN ASPART
     Route: 065
  7. APIDRA SOLOSTAR [Suspect]
     Active Substance: INSULIN GLULISINE
     Dosage: DOSE- SOMETIMES HAVE TO LOWER HER DOSE BY 1 UNIT
     Route: 058
     Dates: start: 201708, end: 20171029
  8. NOVOLIN [Concomitant]
     Active Substance: INSULIN HUMAN
  9. HUMALOG [Concomitant]
     Active Substance: INSULIN LISPRO

REACTIONS (5)
  - Paraesthesia [Unknown]
  - Hypoglycaemia [Unknown]
  - Hyperhidrosis [Unknown]
  - Product use issue [Unknown]
  - Muscle spasms [Unknown]
